FAERS Safety Report 20863900 (Version 1)
Quarter: 2022Q2

REPORT INFORMATION
  Report Type: Spontaneous
  Country: US (occurrence: US)
  Receive Date: 20220523
  Receipt Date: 20220523
  Transmission Date: 20220720
  Serious: No
  Sender: FDA-Public Use
  Company Number: US-Cardinal Health 414-NPHS-AE-21-3

PATIENT
  Age: 64 Year
  Sex: Female

DRUGS (3)
  1. UNSPECIFIED INGREDIENT [Concomitant]
     Active Substance: UNSPECIFIED INGREDIENT
     Dates: start: 20210624
  2. Potassium tablets [Concomitant]
     Dates: start: 20210624
  3. KIT FOR THE PREPARATION OF TECHNETIUM TC99M SESTAMIBI [Suspect]
     Active Substance: TECHNETIUM TC-99M SESTAMIBI
     Indication: Scan myocardial perfusion
     Route: 065
     Dates: start: 20210624, end: 20210624

REACTIONS (3)
  - Swollen tongue [Unknown]
  - Off label use [Recovered/Resolved]
  - Tongue biting [Unknown]

NARRATIVE: CASE EVENT DATE: 20210624
